FAERS Safety Report 23825068 (Version 1)
Quarter: 2024Q2

REPORT INFORMATION
  Report Type: Spontaneous
  Country: US (occurrence: None)
  Receive Date: 20240506
  Receipt Date: 20240506
  Transmission Date: 20240716
  Serious: No
  Sender: FDA-Public Use
  Company Number: None

PATIENT
  Age: 67 Year
  Sex: Female
  Weight: 90.72 kg

DRUGS (4)
  1. COSENTYX [Suspect]
     Active Substance: SECUKINUMAB
     Indication: Rheumatoid arthritis
     Dosage: INJECTE 150MG (1 PEN) SUBCUTANEOUSLY ONCE A  WEEK FOR 5 WEEKS AS DIRECTED?
     Route: 058
     Dates: start: 202304
  2. COSENTYX [Suspect]
     Active Substance: SECUKINUMAB
     Indication: Psoriatic arthropathy
  3. OTEZLA [Suspect]
     Active Substance: APREMILAST
  4. ALDACTONE [Suspect]
     Active Substance: SPIRONOLACTONE

REACTIONS (4)
  - Product use issue [None]
  - Sinusitis [None]
  - Therapy interrupted [None]
  - Joint dislocation [None]
